FAERS Safety Report 7604540-3 (Version None)
Quarter: 2011Q3

REPORT INFORMATION
  Report Type: 
  Country: None (occurrence: None)
  Receive Date: 20110712
  Receipt Date: 20110629
  Transmission Date: 20111222
  Serious: Yes (Other)
  Sender: FDA-Public Use
  Company Number: US-JNJFOC-20110703344

PATIENT
  Age: 56 Year
  Weight: 74.84 kg

DRUGS (4)
  1. ASTHMA INHALER [Concomitant]
     Indication: ASTHMA
     Route: 065
  2. EXTRA STRENGTH TYLENOL [Suspect]
     Indication: MYALGIA
     Dosage: 1 CAPLET, 1-2 TIMES A DAY, AS NEEDED
     Route: 048
     Dates: end: 20100901
  3. ATROVENT [Concomitant]
     Indication: CHRONIC OBSTRUCTIVE PULMONARY DISEASE
     Route: 065
  4. EXTRA STRENGTH TYLENOL [Suspect]
     Route: 048

REACTIONS (2)
  - PRODUCT QUALITY ISSUE [None]
  - ASTHMA [None]
